FAERS Safety Report 25371604 (Version 1)
Quarter: 2025Q2

REPORT INFORMATION
  Report Type: Report from Study
  Country: KR (occurrence: KR)
  Receive Date: 20250529
  Receipt Date: 20250529
  Transmission Date: 20250716
  Serious: Yes (Other)
  Sender: ROCHE
  Company Number: KR-ROCHE-10000290774

PATIENT

DRUGS (2)
  1. ALECTINIB [Suspect]
     Active Substance: ALECTINIB
     Indication: Non-small cell lung cancer
     Dosage: A 150 MG CAPSULE NEWLY FORMULATED FROM THE OLD FORMS OF 20/40 MG CAPSULES, TWO DOSE LEVELS (600 AND
     Route: 065
  2. ALECTINIB [Suspect]
     Active Substance: ALECTINIB
     Indication: Anaplastic lymphoma kinase gene mutation

REACTIONS (13)
  - Pneumonitis [Unknown]
  - Oedema peripheral [Unknown]
  - Anaemia [Unknown]
  - Neutropenia [Unknown]
  - Thrombocytopenia [Unknown]
  - Aspartate aminotransferase increased [Unknown]
  - Alanine aminotransferase increased [Unknown]
  - Hyperbilirubinaemia [Unknown]
  - Blood creatinine increased [Unknown]
  - Rash [Unknown]
  - Constipation [Unknown]
  - Myalgia [Unknown]
  - Nausea [Unknown]
